FAERS Safety Report 4965739-8 (Version None)
Quarter: 2006Q2

REPORT INFORMATION
  Report Type: 
  Country: None (occurrence: None)
  Receive Date: 20060405
  Receipt Date: 20060405
  Transmission Date: 20061013
  Serious: Yes (Hospitalization)
  Sender: FDA-Public Use
  Company Number: None

PATIENT
  Age: 71 Year
  Sex: Female
  Weight: 53.5244 kg

DRUGS (1)
  1. IRON DEXTRAN [Suspect]
     Indication: IRON DEFICIENCY
     Dosage: 100 MG DOSE # 3 IV DRIP
     Route: 041

REACTIONS (6)
  - BLOOD PRESSURE SYSTOLIC INCREASED [None]
  - CHILLS [None]
  - CONVULSION [None]
  - HEADACHE [None]
  - PAIN IN EXTREMITY [None]
  - TREMOR [None]
